FAERS Safety Report 19745036 (Version 2)
Quarter: 2022Q2

REPORT INFORMATION
  Report Type: Spontaneous
  Country: IN (occurrence: IN)
  Receive Date: 20210825
  Receipt Date: 20220609
  Transmission Date: 20220721
  Serious: Yes (Other)
  Sender: FDA-Public Use
  Company Number: IN-PFIZER INC-2020241914

PATIENT
  Age: 60 Year
  Sex: Male

DRUGS (4)
  1. SUTENT [Suspect]
     Active Substance: SUNITINIB MALATE
     Indication: Metastatic renal cell carcinoma
     Dosage: UNK
     Dates: start: 201608
  2. SUTENT [Suspect]
     Active Substance: SUNITINIB MALATE
     Dosage: 50 MG, 1X/DAY
     Route: 048
     Dates: start: 20161005
  3. SUTENT [Suspect]
     Active Substance: SUNITINIB MALATE
     Dosage: 50 MG, 2X/DAY
     Route: 048
     Dates: start: 20161005
  4. SUTENT [Suspect]
     Active Substance: SUNITINIB MALATE
     Dosage: 37.5 MG, CYCLIC (2 WEEKS ON AND 1 WEEK OFF)

REACTIONS (11)
  - Pulmonary artery dilatation [Unknown]
  - Hepatic cirrhosis [Unknown]
  - Haemangioma of liver [Unknown]
  - Renal disorder [Unknown]
  - Hepatic lesion [Unknown]
  - Thyroid mass [Unknown]
  - Keloid scar [Unknown]
  - Decreased appetite [Unknown]
  - Fatigue [Unknown]
  - Abdominal pain upper [Unknown]
  - Diarrhoea [Unknown]
